FAERS Safety Report 10255706 (Version 2)
Quarter: 2014Q3

REPORT INFORMATION
  Report Type: Report from Study
  Country: US (occurrence: US)
  Receive Date: 20140624
  Receipt Date: 20140826
  Transmission Date: 20150326
  Serious: Yes (Other)
  Sender: FDA-Public Use
  Company Number: US-SA-2014SA080962

PATIENT
  Age: 67 Year
  Sex: Male

DRUGS (1)
  1. AUBAGIO [Suspect]
     Active Substance: TERIFLUNOMIDE
     Indication: MULTIPLE SCLEROSIS
     Route: 048
     Dates: start: 20140228, end: 20140728

REACTIONS (6)
  - Fatigue [Unknown]
  - Speech disorder [Unknown]
  - Disability [Unknown]
  - Drug ineffective [Unknown]
  - Asthenia [Unknown]
  - Condition aggravated [Unknown]
